FAERS Safety Report 10082152 (Version 1)
Quarter: 2014Q2

REPORT INFORMATION
  Report Type: Spontaneous
  Country: IT (occurrence: IT)
  Receive Date: 20140416
  Receipt Date: 20140416
  Transmission Date: 20141212
  Serious: Yes (Hospitalization)
  Sender: FDA-Public Use
  Company Number: IT-WATSON-2014-07404

PATIENT
  Age: 45 Year
  Sex: Male

DRUGS (1)
  1. ANTABUSE [Suspect]
     Indication: ALCOHOL ABUSE
     Dosage: 800 MG, DAILY
     Route: 048
     Dates: start: 20130708, end: 20130716

REACTIONS (9)
  - Psychomotor hyperactivity [Recovered/Resolved]
  - Tremor [Recovered/Resolved]
  - Asthenia [Recovered/Resolved]
  - Malaise [Recovered/Resolved]
  - Miosis [Recovered/Resolved]
  - Myalgia [Recovered/Resolved]
  - Muscle spasms [Recovered/Resolved]
  - Sopor [Recovered/Resolved]
  - Decreased appetite [Recovered/Resolved]
